FAERS Safety Report 23824983 (Version 2)
Quarter: 2024Q3

REPORT INFORMATION
  Report Type: Spontaneous
  Country: DE (occurrence: DE)
  Receive Date: 20240507
  Receipt Date: 20240808
  Transmission Date: 20241016
  Serious: Yes (Hospitalization)
  Sender: BAYER
  Company Number: DE-BAYER-2024A065625

PATIENT
  Age: 50 Year
  Sex: Male

DRUGS (3)
  1. GADOBUTROL [Suspect]
     Active Substance: GADOBUTROL
     Indication: Magnetic resonance imaging head
     Dosage: UNK, ONCE
     Dates: start: 20230121, end: 20230121
  2. GADOBUTROL [Suspect]
     Active Substance: GADOBUTROL
     Indication: Glioblastoma
     Dosage: UNK, ONCE
     Dates: start: 20230125, end: 20230125
  3. GADOBUTROL [Suspect]
     Active Substance: GADOBUTROL
     Indication: Magnetic resonance imaging head
     Dosage: UNK, ONCE
     Dates: start: 20230508, end: 20230508

REACTIONS (2)
  - Acute generalised exanthematous pustulosis [Recovered/Resolved]
  - Acute generalised exanthematous pustulosis [None]

NARRATIVE: CASE EVENT DATE: 20230127
